FAERS Safety Report 16668598 (Version 1)
Quarter: 2019Q3

REPORT INFORMATION
  Report Type: Spontaneous
  Country: US (occurrence: US)
  Receive Date: 20190804
  Receipt Date: 20190804
  Transmission Date: 20191004
  Serious: Yes (Hospitalization)
  Sender: FDA-Public Use
  Company Number: None

PATIENT
  Age: 60 Year
  Sex: Female
  Weight: 58.5 kg

DRUGS (1)
  1. ALLERGY (DIPHENHYDRAMINE HYDROCHLORIDE) [Suspect]
     Active Substance: DIPHENHYDRAMINE HYDROCHLORIDE
     Indication: URTICARIA
     Dates: start: 20190731, end: 20190731

REACTIONS (8)
  - Pain [None]
  - Self-medication [None]
  - Chest pain [None]
  - Chest discomfort [None]
  - Pain in jaw [None]
  - Asthenia [None]
  - Oropharyngeal pain [None]
  - Cold sweat [None]

NARRATIVE: CASE EVENT DATE: 20190731
